FAERS Safety Report 25755814 (Version 1)
Quarter: 2025Q3

REPORT INFORMATION
  Report Type: Spontaneous
  Country: US (occurrence: US)
  Receive Date: 20250903
  Receipt Date: 20250903
  Transmission Date: 20251021
  Serious: No
  Sender: BAYER HEALTHCARE PHARMACEUTICALS INC.
  Company Number: US-BAYER-2025A111916

PATIENT
  Age: 77 Year
  Sex: Male
  Weight: 86.2 kg

DRUGS (17)
  1. NUBEQA [Suspect]
     Active Substance: DAROLUTAMIDE
     Indication: Hormone-dependent prostate cancer
  2. GALLIUM GA-68 GOZETOTIDE [Suspect]
     Active Substance: GALLIUM GA-68 GOZETOTIDE
     Indication: Hormone-dependent prostate cancer
     Route: 042
     Dates: start: 20220303, end: 20220303
  3. DEGARELIX [Suspect]
     Active Substance: DEGARELIX
     Indication: Hormone-dependent prostate cancer
     Dosage: 240 MG, Q4WK
     Route: 058
     Dates: start: 20220915
  4. AMLODIPINE [Concomitant]
     Active Substance: AMLODIPINE BESYLATE
     Dates: start: 1996
  5. ASPIRIN [Concomitant]
     Active Substance: ASPIRIN
  6. GLIMEPIRIDE [Concomitant]
     Active Substance: GLIMEPIRIDE
     Dates: start: 1996
  7. METFORMIN [Concomitant]
     Active Substance: METFORMIN HYDROCHLORIDE
     Dates: start: 1996
  8. LATANOPROST [Concomitant]
     Active Substance: LATANOPROST
     Dates: start: 2020
  9. BRIMONIDINE [Concomitant]
     Active Substance: BRIMONIDINE TARTRATE
     Dates: start: 2020
  10. TIMOLOL [Concomitant]
     Active Substance: TIMOLOL
  11. DOCUSATE [Concomitant]
     Active Substance: DOCUSATE
  12. ONDANSETRON [Concomitant]
     Active Substance: ONDANSETRON
  13. SENNA [Concomitant]
     Active Substance: SENNOSIDES
  14. ZOMETA [Concomitant]
     Active Substance: ZOLEDRONIC ACID
  15. TRIPTORELIN [Concomitant]
     Active Substance: TRIPTORELIN
  16. APALUTAMIDE [Concomitant]
     Active Substance: APALUTAMIDE
  17. ROSUVASTATIN [Concomitant]
     Active Substance: ROSUVASTATIN

REACTIONS (1)
  - Hyperhidrosis [Not Recovered/Not Resolved]

NARRATIVE: CASE EVENT DATE: 20221004
